FAERS Safety Report 6729853-9 (Version None)
Quarter: 2010Q2

REPORT INFORMATION
  Report Type: 
  Country: None (occurrence: None)
  Receive Date: 20100518
  Receipt Date: 20100513
  Transmission Date: 20101027
  Serious: Yes (Other)
  Sender: FDA-Public Use
  Company Number: US-B.I. PHARMACEUTICALS,INC./RIDGEFIELD-2010-BP-05412BP

PATIENT
  Sex: Female

DRUGS (2)
  1. AGGRENOX [Suspect]
  2. BACTRIM [Suspect]

REACTIONS (1)
  - RENAL FAILURE [None]
